FAERS Safety Report 23736525 (Version 1)
Quarter: 2024Q2

REPORT INFORMATION
  Report Type: Other
  Country: CN (occurrence: CN)
  Receive Date: 20240412
  Receipt Date: 20240412
  Transmission Date: 20240716
  Serious: Yes (Hospitalization)
  Sender: FDA-Public Use
  Company Number: CN-GE HEALTHCARE-2024CSU003524

PATIENT
  Age: 91 Year
  Sex: Female
  Weight: 55 kg

DRUGS (1)
  1. OMNIPAQUE [Suspect]
     Active Substance: IOHEXOL
     Indication: Imaging procedure
     Dosage: 50 ML, TOTAL
     Route: 013
     Dates: start: 20240331, end: 20240331

REACTIONS (7)
  - Tachypnoea [Unknown]
  - Rales [Unknown]
  - Restlessness [Unknown]
  - Disorganised speech [Unknown]
  - Confusional state [Not Recovered/Not Resolved]
  - Cyanosis [Unknown]
  - Arrhythmia [Unknown]

NARRATIVE: CASE EVENT DATE: 20240401
